FAERS Safety Report 19440104 (Version 3)
Quarter: 2021Q3

REPORT INFORMATION
  Report Type: Spontaneous
  Country: US (occurrence: US)
  Receive Date: 20210620
  Receipt Date: 20210713
  Transmission Date: 20211014
  Serious: No
  Sender: FDA-Public Use
  Company Number: US-ORGANON-O2106USA001561

PATIENT
  Sex: Female
  Weight: 83.46 kg

DRUGS (2)
  1. NEXPLANON [Suspect]
     Active Substance: ETONOGESTREL
     Dosage: 1 ROD
     Route: 059
     Dates: start: 20210616
  2. NEXPLANON [Suspect]
     Active Substance: ETONOGESTREL
     Indication: CONTRACEPTION
     Dosage: 1 ROD (68MG) EVERY 3 YEARS
     Route: 059
     Dates: start: 20201023, end: 20210616

REACTIONS (2)
  - Device breakage [Recovered/Resolved]
  - No adverse event [Unknown]
